FAERS Safety Report 6706757-9 (Version None)
Quarter: 2010Q2

REPORT INFORMATION
  Report Type: 
  Country: None (occurrence: None)
  Receive Date: 20100503
  Receipt Date: 20100423
  Transmission Date: 20101027
  Serious: Yes (Hospitalization, Other)
  Sender: FDA-Public Use
  Company Number: US-ELI_LILLY_AND_COMPANY-US201004007372

PATIENT
  Age: 55 Year
  Sex: Male

DRUGS (3)
  1. EFFIENT [Suspect]
     Indication: PERCUTANEOUS CORONARY INTERVENTION
     Dosage: 60 MG, UNK
     Dates: start: 20100421
  2. EFFIENT [Suspect]
     Dosage: 10 MG, UNK
  3. EFFIENT [Suspect]
     Dosage: 10 MG, UNK

REACTIONS (3)
  - DEEP VEIN THROMBOSIS [None]
  - PUNCTURE SITE HAEMORRHAGE [None]
  - VASCULAR PSEUDOANEURYSM [None]
